FAERS Safety Report 5866369-6 (Version None)
Quarter: 2008Q3

REPORT INFORMATION
  Report Type: 
  Country: None (occurrence: None)
  Receive Date: 20080901
  Receipt Date: 20080520
  Transmission Date: 20090109
  Serious: No
  Sender: FDA-Public Use
  Company Number: US-BAYER-200823698NA

PATIENT
  Age: 51 Year
  Sex: Female
  Weight: 71 kg

DRUGS (1)
  1. CLIMARA PRO [Suspect]
     Indication: HORMONE REPLACEMENT THERAPY
     Route: 062

REACTIONS (4)
  - APPLICATION SITE IRRITATION [None]
  - PHARMACEUTICAL PRODUCT COMPLAINT [None]
  - RASH ERYTHEMATOUS [None]
  - RASH PRURITIC [None]
